FAERS Safety Report 5322808-0 (Version None)
Quarter: 2007Q2

REPORT INFORMATION
  Report Type: 
  Country: None (occurrence: None)
  Receive Date: 20070511
  Receipt Date: 20070430
  Transmission Date: 20071010
  Serious: Yes (Hospitalization)
  Sender: FDA-Public Use
  Company Number: PFIZER INC-2007034448

PATIENT
  Age: 54 Year
  Sex: Male
  Weight: 64 kg

DRUGS (1)
  1. SUTENT [Suspect]
     Indication: SQUAMOUS CELL CARCINOMA
     Route: 048

REACTIONS (5)
  - DEHYDRATION [None]
  - HAEMORRHAGE [None]
  - INFECTION [None]
  - MUCOSAL INFLAMMATION [None]
  - STOMATITIS [None]
